FAERS Safety Report 8921383 (Version 3)
Quarter: 2013Q2

REPORT INFORMATION
  Report Type: Spontaneous
  Country: CO (occurrence: CO)
  Receive Date: 20121121
  Receipt Date: 20130411
  Transmission Date: 20140414
  Serious: Yes (Hospitalization, Other)
  Sender: FDA-Public Use
  Company Number: CO-JNJFOC-20121109954

PATIENT
  Age: 2 Month
  Sex: Female

DRUGS (1)
  1. TOPAMAC [Suspect]
     Indication: EPILEPSY
     Route: 048
     Dates: start: 20120911, end: 20121221

REACTIONS (3)
  - Pyrexia [Unknown]
  - Drug administered to patient of inappropriate age [Unknown]
  - Blood sodium abnormal [Unknown]
